FAERS Safety Report 14011752 (Version 2)
Quarter: 2018Q3

REPORT INFORMATION
  Report Type: Spontaneous
  Country: IT (occurrence: IT)
  Receive Date: 20170926
  Receipt Date: 20180726
  Transmission Date: 20181010
  Serious: Yes (Life-Threatening, Hospitalization, Other)
  Sender: FDA-Public Use
  Company Number: PHHY2017IT139247

PATIENT
  Age: 62 Year
  Sex: Female

DRUGS (1)
  1. AMOXICILLIN?CLAVULANIC ACID [Suspect]
     Active Substance: AMOXICILLIN\CLAVULANIC ACID
     Indication: PRODUCT USED FOR UNKNOWN INDICATION
     Dosage: UNK
     Route: 041

REACTIONS (7)
  - Hypotension [Unknown]
  - Dyspnoea [Unknown]
  - Pruritus [Unknown]
  - Kounis syndrome [Unknown]
  - Angina pectoris [Unknown]
  - Urticaria [Unknown]
  - Anaphylactic reaction [Unknown]
